FAERS Safety Report 14621882 (Version 1)
Quarter: 2018Q1

REPORT INFORMATION
  Report Type: Spontaneous
  Country: IT (occurrence: IT)
  Receive Date: 20180310
  Receipt Date: 20180310
  Transmission Date: 20180509
  Serious: Yes (Hospitalization)
  Sender: FDA-Public Use
  Company Number: IT-AUROBINDO-AUR-APL-2018-013033

PATIENT
  Age: 61 Year
  Sex: Male

DRUGS (13)
  1. NEXIUM  ,20 MG COMPRESSE GASTRORESISTENTI                          /01 [Concomitant]
     Dosage: ()
  2. DOBETIN  ,20 MICROGRAMMI/ML GOCCE ORALI, SOLUZIONE [Concomitant]
     Dosage: ()
  3. NORVASC, 5 MG COMPRESSE [Concomitant]
     Dosage: ()
  4. LASIX,25 MG COMPRESSE                              /00032601/ [Concomitant]
     Dosage: ()
  5. GABAPENTIN. [Concomitant]
     Active Substance: GABAPENTIN
     Dosage: ()
  6. HALDOL ,1 MG COMPRESSE                            /00027401/ [Concomitant]
     Dosage: ()
  7. XATRAL [Concomitant]
     Active Substance: ALFUZOSIN
     Dosage: ()
  8. CARDICOR  5 MG COMPRESSE RIVESTITE CON FILM [Concomitant]
     Dosage: ()
  9. BENERVA 300 MG COMPRESSE GASTRORESISTENTI [Concomitant]
     Dosage: ()
  10. CITALOPRAM [Suspect]
     Active Substance: CITALOPRAM HYDROBROMIDE
     Dosage: IN TOTAL
     Route: 048
  11. ASCRIPTIN [Concomitant]
     Active Substance: ASPIRIN
     Dosage: ()
  12. FINASTERIDE. [Concomitant]
     Active Substance: FINASTERIDE
     Dosage: ()
  13. AKINETON  , 2 MG COMPRESSE                        /00079501/ [Concomitant]
     Dosage: ()

REACTIONS (3)
  - Drug abuse [Recovered/Resolved]
  - Bradycardia [Recovered/Resolved]
  - Oxygen saturation decreased [Recovered/Resolved]

NARRATIVE: CASE EVENT DATE: 20171103
